FAERS Safety Report 15184579 (Version 3)
Quarter: 2018Q4

REPORT INFORMATION
  Report Type: Spontaneous
  Country: US (occurrence: US)
  Receive Date: 20180723
  Receipt Date: 20181123
  Transmission Date: 20190204
  Serious: No
  Sender: FDA-Public Use
  Company Number: US-AMGEN-USASP2018084622

PATIENT
  Age: 64 Year
  Sex: Male

DRUGS (1)
  1. REPATHA [Suspect]
     Active Substance: EVOLOCUMAB
     Indication: BLOOD CHOLESTEROL ABNORMAL
     Dosage: 140 MG, Q2WK
     Route: 065
     Dates: start: 201806

REACTIONS (6)
  - Wrong technique in product usage process [Unknown]
  - Groin pain [Unknown]
  - Back pain [Unknown]
  - Pain in extremity [Unknown]
  - Rhinorrhoea [Unknown]
  - Low density lipoprotein increased [Unknown]
